FAERS Safety Report 4439442-7 (Version None)
Quarter: 2004Q3

REPORT INFORMATION
  Report Type: 
  Country: None (occurrence: None)
  Receive Date: 20040728
  Receipt Date: 20040310
  Transmission Date: 20050211
  Serious: No
  Sender: FDA-Public Use
  Company Number: USA040361611

PATIENT
  Age: 18 Year
  Sex: Male
  Weight: 102 kg

DRUGS (2)
  1. STRATTERA [Suspect]
     Dosage: 25 MG/DAY
     Dates: start: 20040201
  2. PROZAC [Suspect]
     Indication: OBSESSIVE-COMPULSIVE DISORDER
     Dosage: 40 MG DAY
     Dates: start: 20030301

REACTIONS (1)
  - PARANOIA [None]
